FAERS Safety Report 10436319 (Version 1)
Quarter: 2014Q3

REPORT INFORMATION
  Report Type: Spontaneous
  Country: US (occurrence: None)
  Receive Date: 20140905
  Receipt Date: 20140905
  Transmission Date: 20150326
  Serious: Yes (Hospitalization)
  Sender: FDA-Public Use
  Company Number: None

PATIENT
  Age: 61 Year
  Sex: Male
  Weight: 90.9 kg

DRUGS (2)
  1. CARBOPLATIN. [Suspect]
     Active Substance: CARBOPLATIN
     Indication: SQUAMOUS CELL CARCINOMA OF THE TONGUE
     Route: 042
     Dates: start: 20140422, end: 20140422
  2. FLUOROURACIL. [Suspect]
     Active Substance: FLUOROURACIL
     Indication: SQUAMOUS CELL CARCINOMA OF THE TONGUE
     Route: 042
     Dates: start: 20140422, end: 20140425

REACTIONS (9)
  - Haematemesis [None]
  - Mallory-Weiss syndrome [None]
  - Nausea [None]
  - Vomiting [None]
  - Leukopenia [None]
  - Mucosal inflammation [None]
  - Thrombocytopenia [None]
  - Anaemia [None]
  - Diarrhoea [None]

NARRATIVE: CASE EVENT DATE: 20140429
